FAERS Safety Report 9519064 (Version 1)
Quarter: 2013Q3

REPORT INFORMATION
  Report Type: Spontaneous
  Country: US (occurrence: None)
  Receive Date: 20130911
  Receipt Date: 20130911
  Transmission Date: 20140515
  Serious: Yes (Life-Threatening, Hospitalization)
  Sender: FDA-Public Use
  Company Number: None

PATIENT
  Sex: Female
  Weight: 58.97 kg

DRUGS (1)
  1. CITALOPRAM [Suspect]
     Route: 048

REACTIONS (3)
  - Arrhythmia [None]
  - Atrial fibrillation [None]
  - Extrasystoles [None]
